FAERS Safety Report 7405436-2 (Version None)
Quarter: 2011Q2

REPORT INFORMATION
  Report Type: 
  Country: None (occurrence: None)
  Receive Date: 20110411
  Receipt Date: 20110404
  Transmission Date: 20111010
  Serious: Yes (Other)
  Sender: FDA-Public Use
  Company Number: AU-US-EMD SERONO, INC.-7015008

PATIENT
  Sex: Female

DRUGS (2)
  1. REBIF [Suspect]
     Indication: PRODUCT USED FOR UNKNOWN INDICATION
     Dates: start: 20100720, end: 20100727
  2. REBIF [Suspect]
     Dates: start: 20100831, end: 20110308

REACTIONS (4)
  - INJECTION SITE ERYTHEMA [None]
  - CONVULSION [None]
  - INJECTION SITE HAEMATOMA [None]
  - GRAND MAL CONVULSION [None]
